FAERS Safety Report 8426259 (Version 2)
Quarter: 2013Q2

REPORT INFORMATION
  Report Type: Spontaneous
  Country: BR (occurrence: BR)
  Receive Date: 20120227
  Receipt Date: 20130528
  Transmission Date: 20140414
  Serious: Yes (Other)
  Sender: FDA-Public Use
  Company Number: BR-AMGEN-BRASP2012010652

PATIENT
  Age: 53 Year
  Sex: Female
  Weight: 80 kg

DRUGS (4)
  1. ENBREL [Suspect]
     Indication: RHEUMATOID ARTHRITIS
     Dosage: 50 MG, ONCE WEEKLY
     Route: 058
     Dates: start: 20110809
  2. ENBREL [Suspect]
     Dosage: 50 MG, ONCE A WEEK
     Route: 058
  3. PARACETAMOL [Concomitant]
     Indication: PAIN
     Dosage: 500 MG, AS NEEDED
  4. PACO [Concomitant]
     Dosage: 500 MG, UNK

REACTIONS (6)
  - Diabetes mellitus [Unknown]
  - Gait disturbance [Not Recovered/Not Resolved]
  - Insomnia [Not Recovered/Not Resolved]
  - Pain [Unknown]
  - Arthralgia [Unknown]
  - Bone pain [Unknown]
